FAERS Safety Report 7019910-4 (Version None)
Quarter: 2010Q3

REPORT INFORMATION
  Report Type: 
  Country: None (occurrence: None)
  Receive Date: 20100929
  Receipt Date: 20100917
  Transmission Date: 20110219
  Serious: Yes (Other)
  Sender: FDA-Public Use
  Company Number: HU-JNJFOC-20100906258

PATIENT
  Sex: Female
  Weight: 53 kg

DRUGS (3)
  1. REMICADE [Suspect]
     Indication: COLITIS ULCERATIVE
     Dosage: 5TH INFUSION
     Route: 042
  2. REMICADE [Suspect]
     Route: 042
  3. MESALAMINE [Concomitant]
     Indication: COLITIS ULCERATIVE

REACTIONS (7)
  - ALBUMIN URINE PRESENT [None]
  - CYANOSIS [None]
  - DYSPNOEA [None]
  - INFUSION RELATED REACTION [None]
  - PRURITUS [None]
  - TACHYCARDIA [None]
  - URINE KETONE BODY PRESENT [None]
